FAERS Safety Report 21301787 (Version 1)
Quarter: 2022Q3

REPORT INFORMATION
  Report Type: Spontaneous
  Country: IN (occurrence: IN)
  Receive Date: 20220907
  Receipt Date: 20220907
  Transmission Date: 20221027
  Serious: Yes (Hospitalization, Other)
  Sender: FDA-Public Use
  Company Number: IN-MLMSERVICE-20220823-3747247-1

PATIENT
  Age: 32 Year
  Sex: Male

DRUGS (7)
  1. METFORMIN [Suspect]
     Active Substance: METFORMIN HYDROCHLORIDE
     Indication: Glucose tolerance impaired
     Route: 065
  2. AMOXICILLIN\CLAVULANATE POTASSIUM [Suspect]
     Active Substance: AMOXICILLIN\CLAVULANATE POTASSIUM
     Indication: Cutaneous vasculitis
     Route: 065
  3. MUPIROCIN [Concomitant]
     Active Substance: MUPIROCIN
     Indication: Cutaneous vasculitis
     Dosage: UNKNOWN
     Route: 061
  4. CHLORPHENIRAMINE MALEATE 20 mg [Concomitant]
     Indication: Cutaneous vasculitis
     Dosage: UNKNOWN
     Route: 065
  5. CETRIZINE 10 mg [Concomitant]
     Indication: Cutaneous vasculitis
     Route: 065
  6. CALAMINE [Concomitant]
     Active Substance: CALAMINE\FERRIC OXIDE RED\ZINC OXIDE
     Indication: Cutaneous vasculitis
     Dosage: UNKNOWN
     Route: 061
  7. PHENOBARBITAL 50 mg, PHENYTOIN 100 mg [Concomitant]
     Indication: Seizure
     Dosage: AT NIGHT
     Route: 065

REACTIONS (2)
  - Cutaneous vasculitis [Recovering/Resolving]
  - Condition aggravated [Recovering/Resolving]
